FAERS Safety Report 16418904 (Version 2)
Quarter: 2019Q2

REPORT INFORMATION
  Report Type: Spontaneous
  Country: JP (occurrence: JP)
  Receive Date: 20190612
  Receipt Date: 20190626
  Transmission Date: 20190711
  Serious: Yes (Hospitalization, Other)
  Sender: FDA-Public Use
  Company Number: JP-AMGEN-JPNSP2019093272

PATIENT
  Age: 43 Year
  Sex: Female

DRUGS (7)
  1. EPIRUBICIN [Concomitant]
     Active Substance: EPIRUBICIN
     Dosage: 130 MILLIGRAM/SQ. METER
     Route: 041
     Dates: start: 20190528, end: 20190528
  2. G-LASTA [Suspect]
     Active Substance: PEGFILGRASTIM
     Indication: COLONY STIMULATING FACTOR THERAPY
     Dosage: 3.6 MILLIGRAM
     Route: 058
     Dates: start: 20190529
  3. CYCLOPHOSPHAMIDE. [Concomitant]
     Active Substance: CYCLOPHOSPHAMIDE
     Dosage: 900 MILLIGRAM/SQ. METER
     Route: 041
     Dates: start: 20190528, end: 20190528
  4. CYCLOPHOSPHAMIDE. [Concomitant]
     Active Substance: CYCLOPHOSPHAMIDE
     Indication: BREAST CANCER
     Dosage: 900 MILLIGRAM/SQ. METER
     Route: 041
  5. EPIRUBICIN [Concomitant]
     Active Substance: EPIRUBICIN
     Indication: BREAST CANCER
     Dosage: 130 MILLIGRAM/SQ. METER
     Route: 041
  6. EPIRUBICIN [Concomitant]
     Active Substance: EPIRUBICIN
     Dosage: 130 MILLIGRAM/SQ. METER
     Route: 041
     Dates: start: 20190618, end: 20190618
  7. CYCLOPHOSPHAMIDE. [Concomitant]
     Active Substance: CYCLOPHOSPHAMIDE
     Dosage: 900 MILLIGRAM/SQ. METER
     Route: 041
     Dates: start: 20190618, end: 20190618

REACTIONS (1)
  - Febrile neutropenia [Recovered/Resolved]

NARRATIVE: CASE EVENT DATE: 20190604
